FAERS Safety Report 24307626 (Version 2)
Quarter: 2024Q3

REPORT INFORMATION
  Report Type: Spontaneous
  Country: US (occurrence: US)
  Receive Date: 20240911
  Receipt Date: 20240912
  Transmission Date: 20241017
  Serious: No
  Sender: MERCK
  Company Number: US-009507513-2408USA006398

PATIENT
  Sex: Male
  Weight: 64 kg

DRUGS (3)
  1. KEYTRUDA [Suspect]
     Active Substance: PEMBROLIZUMAB
     Indication: Metastasis
     Dosage: UNK
     Dates: start: 20200102, end: 202006
  2. CARBOPLATIN [Suspect]
     Active Substance: CARBOPLATIN
     Indication: Metastasis
     Dosage: UNK
     Dates: start: 20200102, end: 20200305
  3. PEMETREXED [Suspect]
     Active Substance: PEMETREXED
     Indication: Metastasis
     Dosage: UNK
     Dates: start: 20200102, end: 20200604

REACTIONS (1)
  - Adverse event [Unknown]
